FAERS Safety Report 23184163 (Version 4)
Quarter: 2024Q3

REPORT INFORMATION
  Report Type: Spontaneous
  Country: US (occurrence: US)
  Receive Date: 20231115
  Receipt Date: 20240924
  Transmission Date: 20241016
  Serious: Yes (Other)
  Sender: BRISTOL MYERS SQUIBB
  Company Number: US-BRISTOL-MYERS SQUIBB COMPANY-2023-162502

PATIENT
  Age: 60 Year
  Sex: Female

DRUGS (2)
  1. REVLIMID [Suspect]
     Active Substance: LENALIDOMIDE
     Indication: Plasma cell myeloma
     Route: 048
     Dates: start: 202105
  2. REVLIMID [Suspect]
     Active Substance: LENALIDOMIDE
     Dosage: 1 TIME DAILY
     Route: 048
     Dates: start: 202111

REACTIONS (2)
  - Neuropathy peripheral [Not Recovered/Not Resolved]
  - Joint stiffness [Unknown]

NARRATIVE: CASE EVENT DATE: 20220101
